FAERS Safety Report 5716136-9 (Version None)
Quarter: 2008Q2

REPORT INFORMATION
  Report Type: 
  Country: None (occurrence: None)
  Receive Date: 20080423
  Receipt Date: 20080423
  Transmission Date: 20081010
  Serious: No
  Sender: FDA-Public Use
  Company Number: None

PATIENT
  Sex: Female
  Weight: 22.6799 kg

DRUGS (1)
  1. SINGULAIR [Suspect]
     Indication: ASTHMA
     Dosage: 1 CHEWABLE TABLET 1 TIME DAILY PO
     Route: 048
     Dates: start: 20060723, end: 20080316

REACTIONS (5)
  - ABNORMAL BEHAVIOUR [None]
  - ANGER [None]
  - ILL-DEFINED DISORDER [None]
  - MOOD SWINGS [None]
  - OPPOSITIONAL DEFIANT DISORDER [None]
